FAERS Safety Report 6230198-4 (Version None)
Quarter: 2009Q2

REPORT INFORMATION
  Report Type: 
  Country: None (occurrence: None)
  Receive Date: 20090615
  Receipt Date: 20090602
  Transmission Date: 20091009
  Serious: Yes (Hospitalization)
  Sender: FDA-Public Use
  Company Number: FR-MYLANLABS-2009S1009661

PATIENT
  Age: 68 Year
  Sex: Male
  Weight: 70 kg

DRUGS (7)
  1. BISOPROLOL [Suspect]
     Indication: PROPHYLAXIS
     Route: 048
  2. ALPRAZOLAM [Suspect]
     Indication: DRUG USE FOR UNKNOWN INDICATION
  3. ATRACURIUM BESYLATE [Suspect]
     Indication: INDUCTION OF ANAESTHESIA
  4. SUFENTANIL [Suspect]
     Indication: INDUCTION OF ANAESTHESIA
  5. HYDROXYZINE [Concomitant]
     Dosage: GIVEN EVENING BEFORE, AND MORNING OF, SURGERY.
  6. ASPIRIN [Concomitant]
     Indication: CORONARY ARTERY DISEASE
  7. THIOPENTAL SODIUM [Concomitant]
     Indication: INDUCTION OF ANAESTHESIA

REACTIONS (3)
  - CONGESTIVE CARDIOMYOPATHY [None]
  - HYPOTENSION [None]
  - MYOCARDIAL ISCHAEMIA [None]
